FAERS Safety Report 6756432-X (Version None)
Quarter: 2010Q2

REPORT INFORMATION
  Report Type: 
  Country: None (occurrence: None)
  Receive Date: 20100604
  Receipt Date: 20100527
  Transmission Date: 20101027
  Serious: Yes (Other)
  Sender: FDA-Public Use
  Company Number: A0861693A

PATIENT
  Age: 43 Year
  Sex: Female

DRUGS (8)
  1. LAMICTAL [Suspect]
     Indication: BIPOLAR DISORDER
     Dosage: 150MG PER DAY
     Route: 048
     Dates: start: 20050101
  2. SEROQUEL [Concomitant]
  3. TRAZODONE HCL [Concomitant]
  4. PROZAC [Concomitant]
  5. PRILOSEC [Concomitant]
  6. NAPROXEN [Concomitant]
  7. CLARITIN [Concomitant]
  8. VITAMINS [Concomitant]

REACTIONS (1)
  - VISUAL ACUITY REDUCED [None]
